FAERS Safety Report 9772783 (Version 1)
Quarter: 2013Q4

REPORT INFORMATION
  Report Type: Spontaneous
  Country: US (occurrence: US)
  Receive Date: 20131219
  Receipt Date: 20131219
  Transmission Date: 20140711
  Serious: Yes (Hospitalization, Other)
  Sender: FDA-Public Use
  Company Number: US-BRISTOL-MYERS SQUIBB COMPANY-19902352

PATIENT
  Age: 77 Year
  Sex: Male

DRUGS (7)
  1. WARFARIN SODIUM [Suspect]
     Indication: ATRIAL FIBRILLATION
     Dates: start: 2006
  2. SPIRIVA [Suspect]
  3. LASIX [Concomitant]
  4. POTASSIUM [Concomitant]
  5. ZOCOR [Concomitant]
  6. AMLODIPINE [Concomitant]
  7. TOPROL [Concomitant]

REACTIONS (2)
  - Cerebrovascular accident [Unknown]
  - Penis disorder [Unknown]
